FAERS Safety Report 12921274 (Version 1)
Quarter: 2016Q4

REPORT INFORMATION
  Report Type: Spontaneous
  Country: US (occurrence: US)
  Receive Date: 20161107
  Receipt Date: 20161107
  Transmission Date: 20170207
  Serious: Yes (Hospitalization)
  Sender: FDA-Public Use
  Company Number: US-MALLINCKRODT-T201602664

PATIENT
  Age: 7 Year
  Sex: Male

DRUGS (3)
  1. GABLOFEN [Suspect]
     Active Substance: BACLOFEN
     Indication: CEREBRAL PALSY
     Dosage: 180.6 ?G, QD
     Route: 037
  2. GABLOFEN [Suspect]
     Active Substance: BACLOFEN
     Indication: MUSCLE SPASTICITY
     Dosage: 198 ?G, QD
     Route: 037
     Dates: end: 20160930
  3. GABLOFEN [Suspect]
     Active Substance: BACLOFEN
     Dosage: 99 ?G, QD
     Route: 037
     Dates: start: 60160930

REACTIONS (4)
  - Withdrawal syndrome [Not Recovered/Not Resolved]
  - Device issue [Unknown]
  - Hypoxic-ischaemic encephalopathy [Unknown]
  - Discomfort [Unknown]

NARRATIVE: CASE EVENT DATE: 201607
